FAERS Safety Report 4285112-8 (Version None)
Quarter: 2004Q1

REPORT INFORMATION
  Report Type: 
  Country: None (occurrence: None)
  Receive Date: 20040204
  Receipt Date: 20031215
  Transmission Date: 20041129
  Serious: Yes (Hospitalization)
  Sender: FDA-Public Use
  Company Number: NL-GLAXOSMITHKLINE-B0317638A

PATIENT
  Age: 44 Year
  Sex: Male
  Weight: 95 kg

DRUGS (3)
  1. COMBIVIR [Suspect]
     Indication: HIV INFECTION
     Dosage: 1TAB TWICE PER DAY
     Route: 048
     Dates: start: 20031126
  2. KALETRA [Suspect]
     Indication: HIV INFECTION
     Dosage: 3CAP TWICE PER DAY
     Route: 048
     Dates: start: 20031126
  3. FENPROCOUMON [Concomitant]
     Indication: PULMONARY EMBOLISM
     Route: 048
     Dates: start: 20031106

REACTIONS (12)
  - APHASIA [None]
  - BACTERIAL SEPSIS [None]
  - CHILLS [None]
  - COGNITIVE DISORDER [None]
  - DIZZINESS [None]
  - DYSPNOEA [None]
  - ELECTROENCEPHALOGRAM ABNORMAL [None]
  - ENCEPHALITIS HERPES [None]
  - ENCEPHALOPATHY [None]
  - GRAM STAIN NEGATIVE [None]
  - PO2 ABNORMAL [None]
  - PYREXIA [None]
